FAERS Safety Report 8858854 (Version 1)
Quarter: 2012Q4

REPORT INFORMATION
  Report Type: 
  Country: US (occurrence: US)
  Receive Date: 20121024
  Receipt Date: 20121024
  Transmission Date: 20130627
  Serious: Yes (Life-Threatening, Hospitalization, Other)
  Sender: FDA-Public Use
  Company Number: US-BAYER-2012-111144

PATIENT
  Age: 50 Year
  Sex: Female

DRUGS (1)
  1. AVELOX [Suspect]
     Indication: INFECTION NOS
     Dosage: 400 mg, QD
     Route: 048
     Dates: start: 20121016, end: 20121016

REACTIONS (1)
  - Anaphylactic reaction [Recovered/Resolved]
